FAERS Safety Report 8393896-2 (Version None)
Quarter: 2012Q2

REPORT INFORMATION
  Report Type: 
  Country: None (occurrence: None)
  Receive Date: 20120516
  Receipt Date: 20120510
  Transmission Date: 20120825
  Serious: Yes (Death, Hospitalization)
  Sender: FDA-Public Use
  Company Number: 2012SP024979

PATIENT
  Age: 52 Week
  Sex: Male
  Weight: 48 kg

DRUGS (3)
  1. REBETOL [Suspect]
     Indication: HEPATITIS C
     Dosage: 400 MG;BID;
     Dates: start: 20111014, end: 20120116
  2. VICTRELIS [Suspect]
     Indication: HEPATITIS C
     Dosage: 800 MG;TID
     Dates: start: 20111115, end: 20120116
  3. VIRAFERONPEG [Suspect]
     Indication: HEPATITIS C
     Dosage: 60 MCG;QW
     Dates: start: 20111014, end: 20120116

REACTIONS (9)
  - HAEMATEMESIS [None]
  - ASTHENIA [None]
  - HYPOKALAEMIA [None]
  - CIRRHOSIS ALCOHOLIC [None]
  - CONDITION AGGRAVATED [None]
  - DRUG INEFFECTIVE [None]
  - HYPONATRAEMIA [None]
  - DIARRHOEA [None]
  - HEPATITIS ALCOHOLIC [None]
